FAERS Safety Report 15285367 (Version 1)
Quarter: 2018Q3

REPORT INFORMATION
  Report Type: Spontaneous
  Country: US (occurrence: US)
  Receive Date: 20180816
  Receipt Date: 20180816
  Transmission Date: 20181010
  Serious: No
  Sender: FDA-Public Use
  Company Number: US-BRISTOL-MYERS SQUIBB COMPANY-BMS-2018-076473

PATIENT
  Age: 67 Year

DRUGS (1)
  1. SPRYCEL [Suspect]
     Active Substance: DASATINIB
     Indication: BLAST CELL PROLIFERATION
     Dosage: 100 MG, ONE TIME
     Route: 065

REACTIONS (1)
  - Pleural effusion [Unknown]
